FAERS Safety Report 12188418 (Version 1)
Quarter: 2016Q1

REPORT INFORMATION
  Report Type: Spontaneous
  Country: SG (occurrence: SG)
  Receive Date: 20160317
  Receipt Date: 20160317
  Transmission Date: 20160526
  Serious: Yes (Hospitalization, Other)
  Sender: FDA-Public Use
  Company Number: SG-MYLANLABS-2016M1011458

PATIENT

DRUGS (1)
  1. DIAZEPAM. [Suspect]
     Active Substance: DIAZEPAM
     Indication: BORDERLINE PERSONALITY DISORDER
     Route: 064

REACTIONS (5)
  - Premature baby [Unknown]
  - Dyspnoea [Unknown]
  - Low birth weight baby [Unknown]
  - Depressed level of consciousness [Unknown]
  - Foetal exposure during pregnancy [Recovered/Resolved]
